FAERS Safety Report 7659948 (Version 3)
Quarter: 2014Q2

REPORT INFORMATION
  Report Type: Spontaneous
  Country: US (occurrence: US)
  Receive Date: 20101108
  Receipt Date: 20140618
  Transmission Date: 20141212
  Serious: Yes (Hospitalization, Other)
  Sender: FDA-Public Use
  Company Number: US-US-EMD SERONO, INC.-230474J08USA

PATIENT
  Age: 49 Year
  Sex: Female
  Weight: 64 kg

DRUGS (4)
  1. REBIF [Suspect]
     Indication: MULTIPLE SCLEROSIS
     Route: 058
     Dates: start: 20071010, end: 201103
  2. REBIF [Suspect]
     Route: 058
     Dates: end: 201112
  3. COREG [Concomitant]
     Indication: HYPERTENSION
     Route: 065
     Dates: start: 200612
  4. ALDACTONE [Concomitant]
     Indication: HYPERTENSION
     Route: 065
     Dates: start: 200612

REACTIONS (5)
  - Blood glucose increased [Unknown]
  - Complex partial seizures [Recovered/Resolved]
  - Multiple sclerosis relapse [Unknown]
  - Fatigue [Unknown]
  - Injection site pain [Unknown]
